FAERS Safety Report 5012467-9 (Version None)
Quarter: 2006Q2

REPORT INFORMATION
  Report Type: 
  Country: None (occurrence: None)
  Receive Date: 20060410
  Receipt Date: 20051130
  Transmission Date: 20061013
  Serious: Yes (Death)
  Sender: FDA-Public Use
  Company Number: 05P-163-0318304-00

PATIENT
  Age: 36 Year
  Sex: Male
  Weight: 110.5 kg

DRUGS (4)
  1. DEPAKOTE [Suspect]
     Indication: AFFECTIVE DISORDER
     Dosage: 500 MG, 1 IN 1 DAY AT NIGHT, PER ORAL
     Route: 048
  2. OLANZAPINE [Concomitant]
  3. ZIPRASIDONE HCL [Concomitant]
  4. FLUOXETINE HYDROCHLORIDE [Concomitant]

REACTIONS (1)
  - DEATH [None]
